FAERS Safety Report 7416150-1 (Version None)
Quarter: 2011Q2

REPORT INFORMATION
  Report Type: 
  Country: None (occurrence: None)
  Receive Date: 20110414
  Receipt Date: 20101007
  Transmission Date: 20111010
  Serious: Yes (Other)
  Sender: FDA-Public Use
  Company Number: US-BAYER-201023214NA

PATIENT
  Age: 34 Year
  Sex: Female
  Weight: 47.619 kg

DRUGS (8)
  1. YAZ [Suspect]
     Indication: ACNE
     Dosage: UNK UNK, UNK
     Route: 048
     Dates: start: 20070801, end: 20090401
  2. YASMIN [Suspect]
     Route: 048
     Dates: start: 20070801
  3. HEPSERA [Concomitant]
     Dosage: UNK
     Dates: start: 20070101
  4. LOVENOX [Concomitant]
  5. OCELLA [Suspect]
     Route: 048
     Dates: start: 20070801
  6. WARFARIN SODIUM [Concomitant]
     Dosage: 2 MG, UNK
  7. VITAMIN D [Concomitant]
     Dosage: 50000 IU, OW
     Route: 048
  8. TRIAMTERENE AND HYDROCHLOROTHIAZIDE [Concomitant]
     Dosage: UNK UNK, OM
     Route: 048

REACTIONS (2)
  - PULMONARY EMBOLISM [None]
  - ANXIETY [None]
